FAERS Safety Report 5424460-2 (Version None)
Quarter: 2007Q3

REPORT INFORMATION
  Report Type: 
  Country: None (occurrence: None)
  Receive Date: 20070823
  Receipt Date: 20070816
  Transmission Date: 20080115
  Serious: Yes (Other)
  Sender: FDA-Public Use
  Company Number: IE-MERCK-0708GBR00072

PATIENT
  Sex: Female

DRUGS (2)
  1. FOSAMAX [Suspect]
     Indication: OSTEOPOROSIS
     Route: 048
     Dates: start: 20070209
  2. BETAHISTINE HYDROCHLORIDE [Concomitant]
     Route: 065

REACTIONS (2)
  - MELAENA [None]
  - RECTAL HAEMORRHAGE [None]
